FAERS Safety Report 9797859 (Version 2)
Quarter: 2014Q1

REPORT INFORMATION
  Report Type: Spontaneous
  Country: JP (occurrence: JP)
  Receive Date: 20140106
  Receipt Date: 20140106
  Transmission Date: 20141002
  Serious: Yes (Hospitalization)
  Sender: FDA-Public Use
  Company Number: PHHY2013JP147952

PATIENT
  Age: 7 Year
  Sex: Male
  Weight: 24.3 kg

DRUGS (5)
  1. CICLOSPORIN [Suspect]
     Indication: NEPHROTIC SYNDROME
     Route: 048
  2. CICLOSPORIN [Suspect]
     Indication: FOCAL SEGMENTAL GLOMERULOSCLEROSIS
  3. VALSARTAN [Suspect]
     Indication: PROTEINURIA
  4. LISINOPRIL [Suspect]
     Indication: PROTEINURIA
  5. METHYLPREDISOLONE [Concomitant]

REACTIONS (13)
  - Renal failure [Recovering/Resolving]
  - Renal impairment [Recovering/Resolving]
  - Nausea [Recovering/Resolving]
  - Vomiting [Recovering/Resolving]
  - Proteinuria [Unknown]
  - Malaise [Unknown]
  - Prerenal failure [Unknown]
  - Oedema peripheral [Unknown]
  - Hypoalbuminaemia [Unknown]
  - Oliguria [Unknown]
  - Gastroenteritis [Unknown]
  - Decreased appetite [Unknown]
  - Therapeutic response decreased [Unknown]
